FAERS Safety Report 8762213 (Version 1)
Quarter: 2012Q4

REPORT INFORMATION
  Report Type: 
  Country: BR (occurrence: BR)
  Receive Date: 20120830
  Receipt Date: 20120830
  Transmission Date: 20130627
  Serious: Yes (Hospitalization)
  Sender: FDA-Public Use
  Company Number: PHHY2012BR074528

PATIENT
  Age: 60 Year
  Sex: Female

DRUGS (2)
  1. RASILEZ [Suspect]
     Indication: CARDIAC DISORDER
     Dosage: 300 mg, QD
     Route: 048
  2. RASILEZ [Suspect]
     Dosage: 300 mg, BID
     Route: 048

REACTIONS (6)
  - Malaise [Recovering/Resolving]
  - Kidney infection [Unknown]
  - Blood glucose increased [Unknown]
  - Cardiac disorder [Unknown]
  - Arthritis [Unknown]
  - Osteoarthritis [Unknown]
